FAERS Safety Report 17823666 (Version 4)
Quarter: 2023Q4

REPORT INFORMATION
  Report Type: Spontaneous
  Country: US (occurrence: US)
  Receive Date: 20200526
  Receipt Date: 20231106
  Transmission Date: 20240110
  Serious: No
  Sender: FDA-Public Use
  Company Number: US-PFIZER INC-2020203895

PATIENT
  Age: 50 Year
  Sex: Female

DRUGS (2)
  1. IBRANCE [Suspect]
     Active Substance: PALBOCICLIB
     Dosage: 1 TIME A DAY ON DAYS 1-21 OF A 28 DAY CYCLE
     Route: 048
     Dates: start: 20200515
  2. AROMASIN [Concomitant]
     Active Substance: EXEMESTANE
     Dosage: 25 MG, 1X/DAY AFTER A MEAL
     Route: 048

REACTIONS (3)
  - Diarrhoea [Unknown]
  - Fatigue [Unknown]
  - Tremor [Unknown]

NARRATIVE: CASE EVENT DATE: 20200501
